FAERS Safety Report 8244418-8 (Version None)
Quarter: 2012Q1

REPORT INFORMATION
  Report Type: 
  Country: None (occurrence: None)
  Receive Date: 20120329
  Receipt Date: 20120319
  Transmission Date: 20120608
  Serious: Yes (Other)
  Sender: FDA-Public Use
  Company Number: US-ELI_LILLY_AND_COMPANY-US201203006529

PATIENT
  Sex: Male

DRUGS (2)
  1. EFFIENT [Suspect]
     Indication: STENT PLACEMENT
     Dosage: 10 MG, QD
     Dates: start: 20110301
  2. ASPIRIN [Concomitant]

REACTIONS (3)
  - PERIPHERAL ARTERY ANGIOPLASTY [None]
  - STENT PLACEMENT [None]
  - CHEST PAIN [None]
